FAERS Safety Report 6606680-4 (Version None)
Quarter: 2010Q1

REPORT INFORMATION
  Report Type: 
  Country: None (occurrence: None)
  Receive Date: 20100226
  Receipt Date: 20100217
  Transmission Date: 20100710
  Serious: Yes (Other)
  Sender: FDA-Public Use
  Company Number: US-ABBOTT-10P-163-0627674-00

PATIENT
  Sex: Female

DRUGS (4)
  1. HUMIRA [Suspect]
     Indication: RHEUMATOID ARTHRITIS
     Route: 058
  2. LEVOTHYROXINE [Concomitant]
     Indication: HYPOTHYROIDISM
  3. VITAMIN B-12 [Concomitant]
     Indication: PERNICIOUS ANAEMIA
  4. HYDROCHLOROTHIAZIDE [Concomitant]
     Indication: HYPERTENSION
     Dates: start: 20010101

REACTIONS (7)
  - CHEST PAIN [None]
  - DEHYDRATION [None]
  - GASTROOESOPHAGEAL REFLUX DISEASE [None]
  - MALAISE [None]
  - MASTICATION DISORDER [None]
  - OESOPHAGEAL STENOSIS [None]
  - SENSORY DISTURBANCE [None]
